FAERS Safety Report 5000234-1 (Version None)
Quarter: 2006Q2

REPORT INFORMATION
  Report Type: 
  Country: None (occurrence: None)
  Receive Date: 20060511
  Receipt Date: 20050414
  Transmission Date: 20061013
  Serious: Yes (Hospitalization, Other)
  Sender: FDA-Public Use
  Company Number: US-MERCK-0504USA02466

PATIENT
  Age: 35 Year
  Sex: Female
  Weight: 58 kg

DRUGS (1)
  1. VIOXX [Suspect]
     Indication: VASCULITIS
     Route: 048
     Dates: start: 20000101, end: 20000101

REACTIONS (9)
  - ACUTE CORONARY SYNDROME [None]
  - ANGINA PECTORIS [None]
  - CEREBROVASCULAR ACCIDENT [None]
  - CORONARY ARTERY DISEASE [None]
  - HEADACHE [None]
  - HYPERLIPIDAEMIA [None]
  - HYPERTENSION [None]
  - MYOCARDIAL INFARCTION [None]
  - TRANSIENT ISCHAEMIC ATTACK [None]
